FAERS Safety Report 8445152-1 (Version None)
Quarter: 2012Q2

REPORT INFORMATION
  Report Type: 
  Country: None (occurrence: None)
  Receive Date: 20120618
  Receipt Date: 20120607
  Transmission Date: 20120825
  Serious: Yes (Other)
  Sender: FDA-Public Use
  Company Number: US-ASTRAZENECA-2011SE08926

PATIENT
  Age: 31 Year
  Sex: Male
  Weight: 79.4 kg

DRUGS (11)
  1. SEROQUEL XR [Suspect]
     Indication: INSOMNIA
     Route: 048
     Dates: start: 20101201, end: 20101201
  2. SEROQUEL XR [Suspect]
     Route: 048
     Dates: start: 20110101
  3. SEROQUEL XR [Suspect]
     Route: 048
     Dates: start: 20110101
  4. SEROQUEL XR [Suspect]
     Route: 048
     Dates: start: 20101201, end: 20110101
  5. XANAX [Suspect]
     Indication: ANXIETY
     Route: 048
  6. XANAX [Suspect]
     Route: 048
     Dates: start: 20110501
  7. SEROQUEL XR [Suspect]
     Route: 048
     Dates: start: 20101201, end: 20110101
  8. SOMA [Concomitant]
     Indication: BACK PAIN
  9. SEROQUEL XR [Suspect]
     Route: 048
     Dates: start: 20110101
  10. SEROQUEL XR [Suspect]
     Route: 048
     Dates: start: 20110101
  11. SEROQUEL XR [Suspect]
     Indication: BIPOLAR DISORDER
     Route: 048
     Dates: start: 20101201, end: 20101201

REACTIONS (13)
  - HEADACHE [None]
  - DRUG WITHDRAWAL SYNDROME [None]
  - VOMITING [None]
  - DRUG DOSE OMISSION [None]
  - AGITATION [None]
  - CONVULSION [None]
  - CIRCUMSTANCE OR INFORMATION CAPABLE OF LEADING TO MEDICATION ERROR [None]
  - MALAISE [None]
  - ABDOMINAL PAIN UPPER [None]
  - INSOMNIA [None]
  - FEELING ABNORMAL [None]
  - INTENTIONAL DRUG MISUSE [None]
  - DRUG INEFFECTIVE [None]
